FAERS Safety Report 11185124 (Version 1)
Quarter: 2015Q2

REPORT INFORMATION
  Report Type: Spontaneous
  Country: ES (occurrence: ES)
  Receive Date: 20150612
  Receipt Date: 20150612
  Transmission Date: 20150821
  Serious: Yes (Hospitalization, Disabling)
  Sender: FDA-Public Use
  Company Number: ES-INCYTE CORPORATION-2015IN002470

PATIENT
  Sex: Male

DRUGS (1)
  1. JAKAFI [Suspect]
     Active Substance: RUXOLITINIB
     Indication: MYELOPROLIFERATIVE DISORDER
     Dosage: 15 MG, BID
     Route: 065
     Dates: start: 20121112

REACTIONS (5)
  - Ischaemia [Recovered/Resolved with Sequelae]
  - Necrosis [Unknown]
  - Peripheral ischaemia [Unknown]
  - Pain [Unknown]
  - Pallor [Unknown]

NARRATIVE: CASE EVENT DATE: 20150519
